FAERS Safety Report 13176720 (Version 15)
Quarter: 2020Q1

REPORT INFORMATION
  Report Type: Report from Study
  Country: CA (occurrence: CA)
  Receive Date: 20170201
  Receipt Date: 20200129
  Transmission Date: 20200409
  Serious: Yes (Other)
  Sender: FDA-Public Use
  Company Number: PHHY2017CA015431

PATIENT
  Age: 74 Year
  Sex: Male

DRUGS (10)
  1. ENTRESTO [Suspect]
     Active Substance: SACUBITRIL\VALSARTAN
     Indication: CARDIAC FAILURE
     Dosage: 2 DF, UNK(24 MG OF SACUBITRIL, 26 MG OF VALSARTAN)
     Route: 065
     Dates: start: 20161107, end: 20161114
  2. ENTRESTO [Suspect]
     Active Substance: SACUBITRIL\VALSARTAN
     Dosage: 1 DF, UNK (49 MG OF SACUBITRIL, 51 MG OF VALSARTAN)
     Route: 065
     Dates: start: 20161228, end: 20161228
  3. ENTRESTO [Suspect]
     Active Substance: SACUBITRIL\VALSARTAN
     Dosage: 1 DF, UNK (49 MG OF SACUBITRIL, 51 MG OF VALSARTAN)
     Route: 065
     Dates: start: 20170124, end: 20170208
  4. VITAMIN K [Concomitant]
     Active Substance: PHYTONADIONE
     Indication: PRODUCT USED FOR UNKNOWN INDICATION
     Dosage: UNK
     Route: 065
  5. ENTRESTO [Suspect]
     Active Substance: SACUBITRIL\VALSARTAN
     Dosage: 2 DF, UNK (49 MG OF SACUBITRIL, 51 MG OF VALSARTAN)
     Route: 065
     Dates: start: 20161229, end: 20170124
  6. ENTRESTO [Suspect]
     Active Substance: SACUBITRIL\VALSARTAN
     Dosage: 1 DF, UNK (49 MG OF SACUBITRIL, 51 MG OF VALSARTAN)
     Route: 065
     Dates: start: 20161221, end: 20161222
  7. ENTRESTO [Suspect]
     Active Substance: SACUBITRIL\VALSARTAN
     Dosage: 2 DF, UNK (97 MG OF SACUBITRIL, 103 MG OF VALSARTAN)
     Route: 065
     Dates: start: 20170209
  8. ENTRESTO [Suspect]
     Active Substance: SACUBITRIL\VALSARTAN
     Dosage: 1 DF, UNK (97 MG OF SACUBITRIL, 103 MG OF VALSARTAN)
     Route: 065
     Dates: start: 20170124, end: 20170208
  9. ENTRESTO [Suspect]
     Active Substance: SACUBITRIL\VALSARTAN
     Dosage: 2 DF, UNK (49 MG OF SACUBITRIL, 51 MG OF VALSARTAN)
     Route: 065
     Dates: start: 20161115, end: 20161211
  10. ENTRESTO [Suspect]
     Active Substance: SACUBITRIL\VALSARTAN
     Dosage: 2 DF, UNK (49 MG OF SACUBITRIL, 51 MG OF VALSARTAN)
     Route: 065
     Dates: start: 20161223, end: 20161227

REACTIONS (18)
  - Chest pain [Recovered/Resolved]
  - Haemarthrosis [Recovering/Resolving]
  - Anaemia [Recovered/Resolved]
  - Pulmonary mass [Not Recovered/Not Resolved]
  - Acute kidney injury [Recovered/Resolved]
  - Hyperglycaemia [Recovered/Resolved]
  - Fall [Recovering/Resolving]
  - Oedema peripheral [Not Recovered/Not Resolved]
  - Infection [Recovered/Resolved]
  - Blood creatinine increased [Not Recovered/Not Resolved]
  - Blood triglycerides increased [Not Recovered/Not Resolved]
  - Anaemia [Not Recovered/Not Resolved]
  - Sleep apnoea syndrome [Not Recovered/Not Resolved]
  - Dyspnoea paroxysmal nocturnal [Recovered/Resolved]
  - Renal impairment [Not Recovered/Not Resolved]
  - Blood urea increased [Not Recovered/Not Resolved]
  - Blood creatinine increased [Recovered/Resolved]
  - Blood creatinine increased [Recovered/Resolved]

NARRATIVE: CASE EVENT DATE: 20161209
